FAERS Safety Report 25013052 (Version 2)
Quarter: 2025Q1

REPORT INFORMATION
  Report Type: Spontaneous
  Country: BE (occurrence: BE)
  Receive Date: 20250226
  Receipt Date: 20250312
  Transmission Date: 20250408
  Serious: Yes (Other)
  Sender: Kenvue
  Company Number: BE-FAMHP-DHH-N2025-123720

PATIENT

DRUGS (1)
  1. ACETAMINOPHEN [Suspect]
     Active Substance: ACETAMINOPHEN
     Indication: Product used for unknown indication
     Route: 048

REACTIONS (3)
  - General symptom [Not Recovered/Not Resolved]
  - Abdominal pain [Not Recovered/Not Resolved]
  - Overdose [Not Recovered/Not Resolved]
